FAERS Safety Report 24287821 (Version 1)
Quarter: 2024Q3

REPORT INFORMATION
  Report Type: Spontaneous
  Country: CN (occurrence: CN)
  Receive Date: 20240905
  Receipt Date: 20240905
  Transmission Date: 20241016
  Serious: Yes (Hospitalization)
  Sender: ELI LILLY AND CO
  Company Number: CN-Merck Healthcare KGaA-2024045904

PATIENT
  Age: 77 Year
  Sex: Male
  Weight: 57 kg

DRUGS (3)
  1. ERBITUX [Suspect]
     Active Substance: CETUXIMAB
     Indication: Rectal cancer
     Dosage: .9 G, WEEKLY (1/W)
     Route: 041
     Dates: start: 20240704, end: 20240704
  2. IRINOTECAN HYDROCHLORIDE [Suspect]
     Active Substance: IRINOTECAN HYDROCHLORIDE
     Indication: Rectal cancer
     Dosage: 280 MG, OTHER
     Route: 041
     Dates: start: 20240704, end: 20240704
  3. RALTITREXED [Suspect]
     Active Substance: RALTITREXED
     Indication: Rectal cancer
     Dosage: 3 MG, WEEKLY (1/W)
     Route: 041
     Dates: start: 20240704, end: 20240704

REACTIONS (3)
  - Myelosuppression [Not Recovered/Not Resolved]
  - Diarrhoea [Not Recovered/Not Resolved]
  - Nausea [Not Recovered/Not Resolved]

NARRATIVE: CASE EVENT DATE: 20240710
